FAERS Safety Report 9676279 (Version 1)
Quarter: 2013Q4

REPORT INFORMATION
  Report Type: Spontaneous
  Country: US (occurrence: None)
  Receive Date: 20131106
  Receipt Date: 20131106
  Transmission Date: 20140711
  Serious: No
  Sender: FDA-Public Use
  Company Number: CC 13-0808

PATIENT
  Age: 75 Year
  Sex: Female
  Weight: 83.92 kg

DRUGS (8)
  1. METRONIDAZOLE [Suspect]
     Indication: ROSACEA
     Dates: start: 20130723
  2. ITRACONAZOLE [Concomitant]
  3. LOSARTAN/HCTZ [Concomitant]
  4. OMEPRAZOLE [Concomitant]
  5. LEVOTHYROXINE [Concomitant]
  6. GELNIQUE [Concomitant]
  7. PROAIR HFA [Concomitant]
  8. FLUTICASONE [Concomitant]

REACTIONS (4)
  - Rosacea [None]
  - Product substitution issue [None]
  - Therapeutic response unexpected with drug substitution [None]
  - Condition aggravated [None]
